FAERS Safety Report 6056945-2 (Version None)
Quarter: 2009Q1

REPORT INFORMATION
  Report Type: 
  Country: None (occurrence: None)
  Receive Date: 20090126
  Receipt Date: 20090107
  Transmission Date: 20090719
  Serious: Yes (Death)
  Sender: FDA-Public Use
  Company Number: B0553737A

PATIENT
  Age: 44 Year
  Sex: Male

DRUGS (8)
  1. LAMOTRIGINE [Suspect]
     Dosage: ORAL
     Route: 048
  2. QUETIAPINE FUMARATE [Suspect]
  3. DULOXETINE (FORMULATION UNKNOWN) (DULOXETINE) [Suspect]
  4. LORAZEPAM [Suspect]
  5. MODAFINIL (FORMULATION UNKNOWN) (MODAFINIL) [Suspect]
  6. VARDENAFIL (FORMULATION UNKNOWN) (VARDENAFIL) [Suspect]
  7. THORAZINE [Suspect]
  8. TRAMADOL HCL [Suspect]

REACTIONS (1)
  - COMPLETED SUICIDE [None]
